FAERS Safety Report 9529240 (Version 2)
Quarter: 2013Q3

REPORT INFORMATION
  Report Type: Report from Study
  Country: CA (occurrence: CA)
  Receive Date: 20130917
  Receipt Date: 20130924
  Transmission Date: 20140515
  Serious: Yes (Other)
  Sender: FDA-Public Use
  Company Number: CA-JNJFOC-20130907974

PATIENT
  Age: 51 Year
  Sex: Female
  Weight: 77.11 kg

DRUGS (8)
  1. STELARA [Suspect]
     Indication: PSORIASIS
     Route: 058
     Dates: start: 20130628
  2. STELARA [Suspect]
     Indication: PSORIASIS
     Route: 058
     Dates: start: 20120921, end: 20130628
  3. METHOTREXATE [Concomitant]
     Route: 048
  4. ASA [Concomitant]
     Route: 065
  5. VITAMIN D [Concomitant]
     Route: 065
  6. IRON [Concomitant]
     Route: 065
  7. SALAZOPYRIN [Concomitant]
     Route: 065
  8. APO-HYDROXYQUINE [Concomitant]
     Route: 065

REACTIONS (3)
  - Rectal cancer [Unknown]
  - Neoplasm malignant [Not Recovered/Not Resolved]
  - Anaemia [Unknown]
